FAERS Safety Report 16816675 (Version 3)
Quarter: 2020Q1

REPORT INFORMATION
  Report Type: Spontaneous
  Country: US (occurrence: US)
  Receive Date: 20190917
  Receipt Date: 20200325
  Transmission Date: 20200409
  Serious: No
  Sender: FDA-Public Use
  Company Number: US-ASTRAZENECA-2019SF31034

PATIENT
  Age: 8 Month
  Sex: Male
  Weight: 6.8 kg

DRUGS (5)
  1. POLY-VITA [Concomitant]
  2. SYNAGIS [Suspect]
     Active Substance: PALIVIZUMAB
     Indication: ANTIVIRAL PROPHYLAXIS
     Dosage: 105 MG,15MG/KG EVERY MONTH
     Route: 030
     Dates: start: 20190815
  3. VITAMIN D [Concomitant]
     Active Substance: VITAMIN D NOS
  4. SYNAGIS [Suspect]
     Active Substance: PALIVIZUMAB
     Indication: ANTIVIRAL PROPHYLAXIS
     Route: 030
     Dates: start: 201907
  5. IRON DROPS [Concomitant]

REACTIONS (2)
  - Nasopharyngitis [Unknown]
  - Ear infection [Unknown]
